FAERS Safety Report 23110642 (Version 1)
Quarter: 2023Q4

REPORT INFORMATION
  Report Type: Spontaneous
  Country: JP (occurrence: JP)
  Receive Date: 20231026
  Receipt Date: 20231026
  Transmission Date: 20240109
  Serious: Yes (Other)
  Sender: FDA-Public Use
  Company Number: JP-ARGENX-2023-ARGX-JP003602AA

PATIENT

DRUGS (25)
  1. VYVGART [Suspect]
     Active Substance: EFGARTIGIMOD ALFA-FCAB
     Indication: Myasthenia gravis
     Dosage: UNK
     Route: 041
     Dates: start: 202306
  2. VYVGART [Suspect]
     Active Substance: EFGARTIGIMOD ALFA-FCAB
     Dosage: UNK
     Route: 041
     Dates: start: 202309
  3. PREDONINE [Suspect]
     Active Substance: PREDNISOLONE
     Indication: Myasthenia gravis
     Dosage: 5 MG
     Route: 048
     Dates: start: 202009, end: 2020
  4. PREDONINE [Suspect]
     Active Substance: PREDNISOLONE
     Dosage: 10 MG
     Route: 048
     Dates: start: 2020, end: 2021
  5. PREDONINE [Suspect]
     Active Substance: PREDNISOLONE
     Dosage: 14 MG
     Route: 048
     Dates: start: 2021, end: 2021
  6. PREDONINE [Suspect]
     Active Substance: PREDNISOLONE
     Dosage: REDUCED TO MINIMUM 9 MG
     Route: 048
     Dates: start: 2021, end: 2022
  7. PREDONINE [Suspect]
     Active Substance: PREDNISOLONE
     Dosage: 15 MG
     Route: 048
     Dates: start: 2022, end: 2022
  8. PREDONINE [Suspect]
     Active Substance: PREDNISOLONE
     Dosage: 17.5 MG
     Route: 048
     Dates: start: 2022, end: 2022
  9. PREDONINE [Suspect]
     Active Substance: PREDNISOLONE
     Dosage: 15 MG
     Route: 048
     Dates: start: 2022, end: 2022
  10. PREDONINE [Suspect]
     Active Substance: PREDNISOLONE
     Dosage: 14 MG
     Route: 048
     Dates: start: 2022, end: 2022
  11. PREDONINE [Suspect]
     Active Substance: PREDNISOLONE
     Dosage: 13 MG
     Route: 048
     Dates: start: 2022, end: 2023
  12. PREDONINE [Suspect]
     Active Substance: PREDNISOLONE
     Dosage: 15 MG
     Route: 048
     Dates: start: 2023, end: 2023
  13. PREDONINE [Suspect]
     Active Substance: PREDNISOLONE
     Dosage: 13 MG
     Route: 048
     Dates: start: 2023, end: 2023
  14. PREDONINE [Suspect]
     Active Substance: PREDNISOLONE
     Dosage: 11 MG
     Route: 048
     Dates: start: 2023, end: 2023
  15. PREDONINE [Suspect]
     Active Substance: PREDNISOLONE
     Dosage: 10 MG
     Route: 048
     Dates: start: 2023, end: 2023
  16. PREDONINE [Suspect]
     Active Substance: PREDNISOLONE
     Dosage: 9 MG
     Route: 048
     Dates: start: 2023, end: 2023
  17. CYCLOSPORINE [Concomitant]
     Active Substance: CYCLOSPORINE
     Indication: Myasthenia gravis
     Dosage: 200 MG
     Route: 048
  18. AMBENONIUM CHLORIDE [Concomitant]
     Active Substance: AMBENONIUM CHLORIDE
     Indication: Myasthenia gravis
     Dosage: 15 MG
     Route: 065
  19. ACARBOSE [Concomitant]
     Active Substance: ACARBOSE
     Indication: Type 2 diabetes mellitus
     Dosage: 300 MG
     Route: 065
  20. EMPAGLIFLOZIN [Concomitant]
     Active Substance: EMPAGLIFLOZIN
     Indication: Type 2 diabetes mellitus
     Dosage: 10 MG
     Route: 065
  21. Teneligliptin hydrochloride hydrate [Concomitant]
     Indication: Type 2 diabetes mellitus
     Dosage: 20 MG
     Route: 065
  22. INSULIN HUMAN [Concomitant]
     Active Substance: INSULIN HUMAN
     Indication: Type 2 diabetes mellitus
     Dosage: CONTINUOUS TYPE 18U+IMMEDIATE TYPE 25U, TOTAL 43 UNITS/DAY
     Route: 058
  23. LANSOPRAZOLE [Concomitant]
     Active Substance: LANSOPRAZOLE
     Indication: Product used for unknown indication
     Dosage: UNK
     Route: 065
  24. SULFAMETHOXAZOLE AND TRIMETHOPRIM [Concomitant]
     Active Substance: SULFAMETHOXAZOLE\TRIMETHOPRIM
     Indication: Product used for unknown indication
     Dosage: UNK
     Route: 065
  25. ALENDRONATE [Concomitant]
     Active Substance: ALENDRONATE SODIUM
     Indication: Product used for unknown indication
     Dosage: UNK
     Route: 065

REACTIONS (2)
  - Diabetes mellitus inadequate control [Recovering/Resolving]
  - COVID-19 [Unknown]

NARRATIVE: CASE EVENT DATE: 20230801
